FAERS Safety Report 7432658-7 (Version None)
Quarter: 2011Q2

REPORT INFORMATION
  Report Type: 
  Country: None (occurrence: None)
  Receive Date: 20110422
  Receipt Date: 20110415
  Transmission Date: 20111010
  Serious: Yes (Other)
  Sender: FDA-Public Use
  Company Number: BR-ROCHE-744762

PATIENT
  Sex: Female
  Weight: 58 kg

DRUGS (6)
  1. FOLIC ACID [Concomitant]
     Dosage: STARTED A LONG TIME AGO
  2. METHOTREXATE [Concomitant]
     Dosage: STARTED A LONG TIME AGO, FREQUENCY: 6 TABLETS EVERY 8 DAYS
  3. OMEPRAZOLE [Concomitant]
     Dosage: STARTED A LONG TIME AGO
  4. TOCILIZUMAB [Suspect]
     Indication: RHEUMATOID ARTHRITIS
     Dosage: FORM: INFUSION
     Route: 042
     Dates: start: 20100903, end: 20101004
  5. PRELONE [Concomitant]
     Dosage: STARTED A LONG TIME AGO
  6. FOLIC ACID [Concomitant]

REACTIONS (7)
  - DIZZINESS [None]
  - NAUSEA [None]
  - URINARY TRACT INFECTION [None]
  - ANAEMIA [None]
  - CONJUNCTIVITIS [None]
  - KIDNEY INFECTION [None]
  - THERAPEUTIC RESPONSE DECREASED [None]
